FAERS Safety Report 4288461-2 (Version None)
Quarter: 2004Q1

REPORT INFORMATION
  Report Type: 
  Country: None (occurrence: None)
  Receive Date: 20040205
  Receipt Date: 20040115
  Transmission Date: 20041129
  Serious: Yes (Other)
  Sender: FDA-Public Use
  Company Number: USA040156639

PATIENT
  Sex: Female

DRUGS (1)
  1. HUMULIN N [Suspect]

REACTIONS (4)
  - ANKLE FRACTURE [None]
  - FALL [None]
  - LOSS OF CONSCIOUSNESS [None]
  - MEDICATION ERROR [None]
